FAERS Safety Report 9640426 (Version 3)
Quarter: 2014Q2

REPORT INFORMATION
  Report Type: Spontaneous
  Country: DE (occurrence: DE)
  Receive Date: 20131023
  Receipt Date: 20140617
  Transmission Date: 20141212
  Serious: No
  Sender: FDA-Public Use
  Company Number: DE-SA-2013SA103452

PATIENT
  Sex: Female
  Weight: 67 kg

DRUGS (4)
  1. ARAVA [Suspect]
     Indication: RHEUMATIC DISORDER
     Route: 048
     Dates: start: 201111, end: 201305
  2. PREDNISOLONE [Suspect]
     Indication: RHEUMATIC DISORDER
     Route: 048
  3. FERROUS SUCCINATE [Suspect]
     Indication: PRODUCT USED FOR UNKNOWN INDICATION
     Route: 048
  4. FOLIC ACID [Concomitant]
     Route: 048

REACTIONS (1)
  - Exposure during pregnancy [Unknown]
